FAERS Safety Report 20344950 (Version 1)
Quarter: 2022Q1

REPORT INFORMATION
  Report Type: Spontaneous
  Country: US (occurrence: None)
  Receive Date: 20220115
  Receipt Date: 20220115
  Transmission Date: 20220423
  Serious: Yes (Other)
  Sender: FDA-Public Use
  Company Number: None

PATIENT
  Age: 39 Year
  Sex: Male
  Weight: 96.75 kg

DRUGS (6)
  1. BAMLANIVIMAB [Suspect]
     Active Substance: BAMLANIVIMAB
     Indication: COVID-19
     Dosage: OTHER FREQUENCY : SINGLE USE;?
     Route: 041
     Dates: start: 20220111, end: 20220111
  2. ETESEVIMAB [Suspect]
     Active Substance: ETESEVIMAB
     Indication: COVID-19
     Dosage: OTHER FREQUENCY : SINGLE USE;?
     Route: 041
     Dates: start: 20220111, end: 20220111
  3. 100 mL, Sterile prefilled infusion bag containing 0.9% Sodium Chloride [Concomitant]
     Dates: start: 20220111, end: 20220111
  4. 0.9 % Sodium Chloride for flushing tube [Concomitant]
     Dates: start: 20220111, end: 20220111
  5. Filtered Extension Set, 0.2 micron PES filter [Concomitant]
     Dates: start: 20220111, end: 20220111
  6. I.V. administration set [Concomitant]
     Dates: start: 20220111, end: 20220111

REACTIONS (7)
  - Chest pain [None]
  - Chest discomfort [None]
  - Spinal disorder [None]
  - Sensory disturbance [None]
  - Flushing [None]
  - Oxygen saturation decreased [None]
  - Infusion related reaction [None]

NARRATIVE: CASE EVENT DATE: 20220111
